FAERS Safety Report 22899391 (Version 5)
Quarter: 2023Q4

REPORT INFORMATION
  Report Type: Spontaneous
  Country: US (occurrence: US)
  Receive Date: 20230904
  Receipt Date: 20231117
  Transmission Date: 20240109
  Serious: No
  Sender: FDA-Public Use
  Company Number: US-SA-SAC20230901000295

PATIENT
  Age: 70 Year
  Sex: Female

DRUGS (2)
  1. DUPIXENT [Suspect]
     Active Substance: DUPILUMAB
     Indication: Dermatitis
     Dosage: 600 MG, 1X
     Route: 058
     Dates: start: 20230815, end: 20230815
  2. DUPIXENT [Suspect]
     Active Substance: DUPILUMAB
     Indication: Dermatitis atopic
     Dosage: 300 MG, QOW
     Route: 058
     Dates: start: 2023, end: 2023

REACTIONS (6)
  - Injection site rash [Unknown]
  - Injection site bruising [Unknown]
  - Injection site swelling [Unknown]
  - Injection site erythema [Unknown]
  - Elbow operation [Unknown]
  - Product use in unapproved indication [Unknown]

NARRATIVE: CASE EVENT DATE: 20230101
